FAERS Safety Report 9919714 (Version 6)
Quarter: 2014Q2

REPORT INFORMATION
  Report Type: Report from Study
  Country: MX (occurrence: MX)
  Receive Date: 20140224
  Receipt Date: 20140521
  Transmission Date: 20141212
  Serious: Yes (Hospitalization, Other)
  Sender: FDA-Public Use
  Company Number: PHHY2014MX021623

PATIENT
  Age: 68 Year
  Sex: Female

DRUGS (17)
  1. EXFORGE HCT [Suspect]
     Indication: HYPERTENSION
     Dosage: 1 DF(320/10/25MG), DAILY
     Route: 048
     Dates: start: 201401, end: 201402
  2. EXFORGE HCT [Suspect]
     Dosage: 2 DF (320/10/25 MG), DAILY (WHEN PRESSURE IS HIGH)
     Route: 048
  3. SUPRADOL//KETOROLAC TROMETHAMINE [Concomitant]
     Indication: HEADACHE
     Dosage: 3 UKN, DAILY
     Dates: start: 201401
  4. NAPROXEN [Concomitant]
     Indication: PAIN
     Dosage: 3 UKN, DAILY
  5. NAPROXEN [Concomitant]
     Indication: FATIGUE
  6. ROCALTROL [Concomitant]
     Indication: BLOOD CALCIUM ABNORMAL
     Dosage: 1 UKN, DAILY
     Dates: start: 201401
  7. RALOXIFENE [Concomitant]
     Indication: BLOOD CALCIUM ABNORMAL
     Dosage: 1 UKN, DAILY
     Dates: start: 201401
  8. RALOXIFENE [Concomitant]
     Indication: OSTEOPENIA
  9. ALPRAZOLAM [Concomitant]
     Indication: RELAXATION THERAPY
     Dosage: 1 DF, UNK
     Route: 060
     Dates: start: 201401
  10. FUROSEMIDE [Concomitant]
     Indication: DIURETIC THERAPY
     Dosage: 1 UKN, DAILY
     Dates: start: 201401
  11. FUROSEMIDE [Concomitant]
     Indication: PERICARDIAL EFFUSION
  12. METOPROLOL [Concomitant]
     Indication: HYPERTENSION
     Dosage: 2 UKN, DAILY
     Dates: start: 201402
  13. VERAPAMIL [Concomitant]
     Dosage: 3 UKN, DAILY
     Dates: start: 201402
  14. OMEGA                              /01454401/ [Concomitant]
     Indication: CARDIOVASCULAR EVENT PROPHYLAXIS
     Dosage: 4 UKN, DAILY
  15. LEVOTHYROXINE SODIUM [Concomitant]
     Indication: HYPOTHYROIDISM
     Dosage: 0.25 DF, DAILY
     Dates: start: 201312
  16. ATEMPERATOR LP [Concomitant]
     Indication: HEADACHE
     Dosage: 1 UKN(300MG), DAILY
     Dates: start: 201401
  17. ATEMPERATOR LP [Concomitant]
     Indication: MIGRAINE

REACTIONS (10)
  - Hypertensive crisis [Recovered/Resolved]
  - Kidney infection [Unknown]
  - Dysuria [Not Recovered/Not Resolved]
  - General physical health deterioration [Not Recovered/Not Resolved]
  - Heart rate increased [Not Recovered/Not Resolved]
  - Eye irritation [Not Recovered/Not Resolved]
  - Hypotension [Not Recovered/Not Resolved]
  - Tinnitus [Not Recovered/Not Resolved]
  - Dizziness [Not Recovered/Not Resolved]
  - Drug prescribing error [Unknown]
